FAERS Safety Report 16268241 (Version 1)
Quarter: 2019Q2

REPORT INFORMATION
  Report Type: Spontaneous
  Country: FR (occurrence: FR)
  Receive Date: 20190503
  Receipt Date: 20190503
  Transmission Date: 20190711
  Serious: Yes (Hospitalization, Other)
  Sender: FDA-Public Use
  Company Number: FR-GLAXOSMITHKLINE-FR2019077232

PATIENT
  Age: 48 Year
  Sex: Female

DRUGS (4)
  1. THERALENE (ALIMEMAZINE TARTRATE) [Suspect]
     Active Substance: TRIMEPRAZINE TARTRATE
     Indication: PRODUCT USED FOR UNKNOWN INDICATION
     Dosage: 75 DF, UNK
     Route: 048
     Dates: start: 20181028, end: 20181030
  2. VALACICLOVIR [Suspect]
     Active Substance: VALACYCLOVIR HYDROCHLORIDE
     Indication: PRODUCT USED FOR UNKNOWN INDICATION
     Dosage: UNK
     Route: 048
     Dates: start: 20181028, end: 20181030
  3. PRAZEPAM [Suspect]
     Active Substance: PRAZEPAM
     Indication: PRODUCT USED FOR UNKNOWN INDICATION
     Dosage: UNK
     Route: 048
     Dates: start: 20181028, end: 20181030
  4. PARACETAMOL [Suspect]
     Active Substance: ACETAMINOPHEN
     Indication: PRODUCT USED FOR UNKNOWN INDICATION
     Dosage: UNK
     Route: 048
     Dates: start: 20181028, end: 20181030

REACTIONS (4)
  - Acute kidney injury [Recovering/Resolving]
  - Coma [Recovered/Resolved]
  - Acute hepatic failure [Recovering/Resolving]
  - Poisoning deliberate [Recovered/Resolved with Sequelae]

NARRATIVE: CASE EVENT DATE: 20181028
